FAERS Safety Report 9634038 (Version 1)
Quarter: 2013Q4

REPORT INFORMATION
  Report Type: Spontaneous
  Country: US (occurrence: US)
  Receive Date: 20131021
  Receipt Date: 20131021
  Transmission Date: 20140711
  Serious: No
  Sender: FDA-Public Use
  Company Number: US-009507513-1310USA007650

PATIENT
  Sex: Male

DRUGS (2)
  1. VICTRELIS [Suspect]
     Dosage: UNK
     Route: 048
  2. PEGASYS [Suspect]

REACTIONS (2)
  - Syncope [Unknown]
  - Haemoglobin decreased [Unknown]
